FAERS Safety Report 12676259 (Version 1)
Quarter: 2016Q3

REPORT INFORMATION
  Report Type: Spontaneous
  Country: US (occurrence: None)
  Receive Date: 20160822
  Receipt Date: 20160822
  Transmission Date: 20161109
  Serious: Yes (Hospitalization)
  Sender: FDA-Public Use
  Company Number: None

PATIENT
  Age: 66 Year
  Sex: Female
  Weight: 56.7 kg

DRUGS (2)
  1. BONIVA [Suspect]
     Active Substance: IBANDRONATE SODIUM
     Indication: OSTEOPOROSIS
     Dates: start: 19910101, end: 20100101
  2. WOMENS ONE A DAY PACK [Concomitant]

REACTIONS (3)
  - Fall [None]
  - Femur fracture [None]
  - Pelvic fracture [None]

NARRATIVE: CASE EVENT DATE: 20160706
